FAERS Safety Report 7289395-1 (Version None)
Quarter: 2011Q1

REPORT INFORMATION
  Report Type: 
  Country: None (occurrence: None)
  Receive Date: 20110211
  Receipt Date: 20110209
  Transmission Date: 20110831
  Serious: Yes (Life-Threatening, Hospitalization)
  Sender: FDA-Public Use
  Company Number: BR-PFIZER INC-2011028983

PATIENT
  Age: 63 Year
  Sex: Female

DRUGS (2)
  1. MIRTAX [Concomitant]
  2. FELDENE [Suspect]
     Indication: BURSITIS
     Dosage: UNK
     Route: 060

REACTIONS (1)
  - HYPOGLYCAEMIA [None]
